FAERS Safety Report 7626916-0 (Version None)
Quarter: 2011Q3

REPORT INFORMATION
  Report Type: 
  Country: None (occurrence: None)
  Receive Date: 20110721
  Receipt Date: 20110718
  Transmission Date: 20111222
  Serious: Yes (Other)
  Sender: FDA-Public Use
  Company Number: FR-GILEAD-2011-0042031

PATIENT
  Sex: Male

DRUGS (11)
  1. APROVEL [Concomitant]
     Route: 048
  2. EFFEXOR [Concomitant]
     Route: 048
  3. REYATAZ [Concomitant]
     Route: 048
     Dates: start: 20090305
  4. TRUVADA [Suspect]
     Indication: HIV INFECTION
     Route: 048
     Dates: start: 20090305, end: 20110106
  5. BONIVA [Concomitant]
     Route: 048
  6. ZOLPIDEM [Concomitant]
     Route: 048
  7. LEXOMIL [Concomitant]
     Route: 048
  8. FENOFIBRATE [Concomitant]
     Route: 048
  9. METFORMIN ARROW [Concomitant]
     Route: 048
  10. VALACYCLOVIR HYDROCHLORIDE [Concomitant]
     Route: 048
  11. REYATAZ [Concomitant]
     Indication: HIV INFECTION
     Route: 048
     Dates: start: 20090305

REACTIONS (4)
  - RENAL TUBULAR DISORDER [None]
  - BLOOD PHOSPHORUS DECREASED [None]
  - BLOOD CREATININE INCREASED [None]
  - HYPOPHOSPHATAEMIA [None]
